FAERS Safety Report 16877121 (Version 14)
Quarter: 2020Q3

REPORT INFORMATION
  Report Type: Spontaneous
  Country: US (occurrence: US)
  Receive Date: 20191002
  Receipt Date: 20200922
  Transmission Date: 20201102
  Serious: Yes (Hospitalization, Disabling)
  Sender: FDA-Public Use
  Company Number: US-AMERICAN REGENT INC-20182440

PATIENT
  Sex: Female
  Weight: 57 kg

DRUGS (43)
  1. ALBUTEROL                          /00139501/ [Concomitant]
     Active Substance: ALBUTEROL
     Indication: DYSPNOEA
     Dosage: 3 MILLILITER EVERY 6 HOURS, PRN
  2. BENTYL [Concomitant]
     Active Substance: DICYCLOMINE HYDROCHLORIDE
     Indication: MUSCLE SPASMS
     Dosage: 20 MILLIGRAM, QD, PRN
     Route: 048
  3. VITAMIN B12 [Concomitant]
     Active Substance: CYANOCOBALAMIN
     Indication: PRODUCT USED FOR UNKNOWN INDICATION
     Dosage: INJECT 1 MILLILITER WEEKLY FOR 6 CONSECUTIVE WEEKS
     Route: 058
     Dates: end: 20170525
  4. ZOFRAN [Suspect]
     Active Substance: ONDANSETRON HYDROCHLORIDE
     Dosage: 8 MILLIGRAM DISINTEGRATING TABLETS EVERY 6 HRS AROUND THE CLOCK FOR 4?5 DAYS
     Route: 048
     Dates: start: 201705, end: 201705
  5. CETIRIZINE [Concomitant]
     Active Substance: CETIRIZINE HYDROCHLORIDE
     Indication: SEASONAL ALLERGY
     Dosage: 10 MILLIGRAM, QD
     Route: 048
  6. COLACE [Concomitant]
     Active Substance: DOCUSATE SODIUM
     Indication: CONSTIPATION
     Dosage: 100 MILLIGRAM, BID
     Route: 048
  7. EPIPEN [Concomitant]
     Active Substance: EPINEPHRINE
     Dosage: INJECT 0.3 ML INTO MUSCLE PRN AT FIRST SIGHT OF ANAPHYLAXIS THEN CALL 911
     Route: 030
     Dates: start: 20170525
  8. SEASONIQUE [Concomitant]
     Active Substance: ETHINYL ESTRADIOL\LEVONORGESTREL
     Indication: PRODUCT USED FOR UNKNOWN INDICATION
     Dosage: 0.15 MG?30 MCG (84)/10 MCG (7); 1 TABLET EVERY MORNING
     Route: 048
  9. XANAX [Concomitant]
     Active Substance: ALPRAZOLAM
     Dosage: 1 MILLIGRAM, BID, PRN
     Route: 048
     Dates: start: 20170525
  10. ZOFRAN [Suspect]
     Active Substance: ONDANSETRON HYDROCHLORIDE
     Dosage: 8 MILLIGRAM DISINTEGRATING TABLETS EVERY 8 HRS PRN
     Route: 048
  11. ALBUTEROL HFA [Concomitant]
     Active Substance: ALBUTEROL SULFATE
     Indication: ASTHMA
  12. AZELASTINE. [Concomitant]
     Active Substance: AZELASTINE HYDROCHLORIDE
     Indication: HYPERSENSITIVITY
     Dosage: 1 SPRAY, BID, PRN
     Route: 045
  13. MOVIPREP [Concomitant]
     Active Substance: ASCORBIC ACID\POLYETHYLENE GLYCOL 3350\POTASSIUM CHLORIDE\SODIUM ASCORBATE\SODIUM CHLORIDE\SODIUM SULFATE
     Indication: BOWEL PREPARATION
     Dosage: DO FIRST PORTION OF PREPARATION BEGINNING AT 6 PM THE EVENING BEFORE YOUR PROCEDURE. SECOND PORTION
     Route: 048
  14. SINGULAIR [Concomitant]
     Active Substance: MONTELUKAST SODIUM
     Indication: PRODUCT USED FOR UNKNOWN INDICATION
     Dosage: 10 MILLIGRAM EVERY EVENING
     Route: 048
  15. SYNTHROID [Concomitant]
     Active Substance: LEVOTHYROXINE SODIUM
     Indication: HYPOTHYROIDISM
     Dosage: 100 MICROGRAM, QD BEFORE BREAKFAST
     Route: 048
  16. BENTYL [Concomitant]
     Active Substance: DICYCLOMINE HYDROCHLORIDE
     Indication: ABDOMINAL PAIN UPPER
     Dosage: 20 MILLIGRAM EVERY 6 HRS, PRN
     Route: 048
  17. XANAX [Concomitant]
     Active Substance: ALPRAZOLAM
     Indication: ANXIETY
     Dosage: 1 MILLIGRAM EVERY EVENING
     Route: 048
  18. DICLOFENAC EPOLAMINE [Concomitant]
     Active Substance: DICLOFENAC EPOLAMINE
     Indication: MYALGIA
     Dosage: PLACE 1 PATCH ON SKIN BID, PRN
     Route: 061
  19. MAGNESIUM [Concomitant]
     Active Substance: MAGNESIUM
     Indication: PRODUCT USED FOR UNKNOWN INDICATION
     Dosage: 1 CAPSULE QD
     Route: 048
     Dates: end: 20170525
  20. ELECTROLYTES NOS [Concomitant]
     Active Substance: ELECTROLYTES NOS
     Indication: PRODUCT USED FOR UNKNOWN INDICATION
     Dosage: 1 TABLET TID
     Route: 048
     Dates: end: 20170525
  21. INJECTAFER [Suspect]
     Active Substance: FERRIC CARBOXYMALTOSE
     Indication: IRON DEFICIENCY ANAEMIA
     Dosage: 750 MILLIGRAM IN 0.9% NACL TO RUN OVER 1 HR
     Route: 042
     Dates: start: 20170505, end: 20170505
  22. ZOFRAN [Suspect]
     Active Substance: ONDANSETRON HYDROCHLORIDE
     Indication: NAUSEA
     Dosage: 8 MILLIGRAM TABLET, QD, PRN
     Route: 048
  23. AZELASTINE. [Concomitant]
     Active Substance: AZELASTINE HYDROCHLORIDE
     Dosage: 1 SPRAY INTO BOTH NOSTRILS BID
     Route: 045
     Dates: start: 20170525
  24. IBUPROFEN. [Concomitant]
     Active Substance: IBUPROFEN
     Indication: PAIN
     Dosage: 600 MILLIGRAM EVERY 6 HOURS, PRN
     Route: 048
  25. VYVANSE [Concomitant]
     Active Substance: LISDEXAMFETAMINE DIMESYLATE
     Indication: ATTENTION DEFICIT HYPERACTIVITY DISORDER
     Dosage: 30 MILLIGRAM EVERY MORNING
     Route: 048
     Dates: end: 20170525
  26. FERGON [Concomitant]
     Active Substance: FERROUS GLUCONATE
     Indication: PRODUCT USED FOR UNKNOWN INDICATION
     Dosage: 1 TABLET DAILY WITH BREAKFAST AND IN EVENING
     Route: 048
     Dates: end: 20170525
  27. ADDERALL [Concomitant]
     Active Substance: AMPHETAMINE ASPARTATE\AMPHETAMINE SULFATE\DEXTROAMPHETAMINE SACCHARATE\DEXTROAMPHETAMINE SULFATE
     Indication: PRODUCT USED FOR UNKNOWN INDICATION
     Dosage: 10 MILLIGRAM, QD
     Route: 048
  28. MAXALT [Concomitant]
     Active Substance: RIZATRIPTAN BENZOATE
     Dosage: 10 MILLIGRAM AT FIRST SIGN OF MIGRAINE. MAY REPEAT ONCE. DO NOT EXCEED 2 PER 24 HRS.
     Route: 048
  29. CETIRIZINE [Concomitant]
     Active Substance: CETIRIZINE HYDROCHLORIDE
     Indication: PREMEDICATION
     Dosage: 10 MILLIGRAM ONE HOUR BEFORE INFUSION
     Route: 065
     Dates: start: 20170505, end: 20170516
  30. MAXALT [Concomitant]
     Active Substance: RIZATRIPTAN BENZOATE
     Indication: MIGRAINE
     Dosage: 10 MILLIGRAM, PRN AT FIRST SIGN OF MIGRAINE
     Route: 048
  31. VYVANSE [Concomitant]
     Active Substance: LISDEXAMFETAMINE DIMESYLATE
     Dosage: 40 MILLIGRAM EVERY MORNING
     Route: 048
     Dates: start: 20170525
  32. TRAZODONE [Concomitant]
     Active Substance: TRAZODONE HYDROCHLORIDE
     Indication: INSOMNIA
     Dosage: 25 MILLIGRAM, PRN AT BEDTIME
     Route: 065
  33. FENTANYL. [Concomitant]
     Active Substance: FENTANYL
     Indication: COLONOSCOPY
     Dosage: 250 MICROGRAM
     Route: 042
     Dates: start: 20170504, end: 20170504
  34. MIDAZOLAM. [Concomitant]
     Active Substance: MIDAZOLAM
     Indication: COLONOSCOPY
     Dosage: 10 MILLIGRAM
     Route: 042
     Dates: start: 20170504, end: 20170504
  35. INJECTAFER [Suspect]
     Active Substance: FERRIC CARBOXYMALTOSE
     Indication: IRON DEFICIENCY
     Dosage: 750 MILLIGRAM IN 0.9% NACL TO RUN OVER 1 HR
     Route: 042
     Dates: start: 20170516, end: 20170516
  36. ALBUTEROL HFA [Concomitant]
     Active Substance: ALBUTEROL SULFATE
     Indication: DYSPNOEA
     Dosage: 2 PUFFS EVERY 6 HOURS, PRN
  37. CETIRIZINE [Concomitant]
     Active Substance: CETIRIZINE HYDROCHLORIDE
     Dosage: 10 MILLIGRAM, BID
     Route: 048
     Dates: start: 20170525
  38. EPIPEN [Concomitant]
     Active Substance: EPINEPHRINE
     Indication: ANAPHYLACTIC REACTION
     Dosage: 1 MILLILITER, PRN
     Route: 030
  39. TIROSINT [Concomitant]
     Active Substance: LEVOTHYROXINE SODIUM
     Indication: PRODUCT USED FOR UNKNOWN INDICATION
     Dosage: 112 MICROGRAM, QD
     Route: 048
  40. VITAMIN D                          /00318501/ [Concomitant]
     Active Substance: CHOLECALCIFEROL
     Indication: PRODUCT USED FOR UNKNOWN INDICATION
     Dosage: 2000 INTERNATIONAL UNIT, QD
     Route: 048
     Dates: end: 20170525
  41. ZYRTEC [Concomitant]
     Active Substance: CETIRIZINE HYDROCHLORIDE
     Indication: PRODUCT USED FOR UNKNOWN INDICATION
     Dosage: 10 MILLIGRAM EVERY BEDTIME
     Route: 048
  42. ONDANSETRON INJECTION (4420?01) [Concomitant]
     Active Substance: ONDANSETRON
     Indication: COLONOSCOPY
     Dosage: 4 MILLIGRAM
     Route: 042
     Dates: start: 20170504, end: 20170504
  43. SIMETHICONE (DIMETHICONE) [Concomitant]
     Active Substance: DIMETHICONE
     Indication: COLONOSCOPY
     Dosage: 1 MILLILITER PER ENDOSCOPE
     Route: 065
     Dates: start: 20170504, end: 20170504

REACTIONS (6)
  - Emotional distress [Not Recovered/Not Resolved]
  - Anxiety [Not Recovered/Not Resolved]
  - Hypophosphataemia [Recovering/Resolving]
  - Product quality issue [Unknown]
  - Pain [Not Recovered/Not Resolved]
  - Anhedonia [Not Recovered/Not Resolved]

NARRATIVE: CASE EVENT DATE: 2017
